FAERS Safety Report 8225223-5 (Version None)
Quarter: 2012Q1

REPORT INFORMATION
  Report Type: 
  Country: None (occurrence: None)
  Receive Date: 20120321
  Receipt Date: 20120312
  Transmission Date: 20120608
  Serious: Yes (Hospitalization, Other)
  Sender: FDA-Public Use
  Company Number: US-MERCK-1111USA02483

PATIENT
  Age: 71 Year
  Sex: Female

DRUGS (3)
  1. FOSAMAX [Suspect]
     Indication: OSTEOPOROSIS
     Route: 048
     Dates: end: 20041013
  2. FOSAMAX [Suspect]
     Route: 065
     Dates: end: 20100101
  3. FOSAMAX [Suspect]
     Route: 048
     Dates: start: 20041014

REACTIONS (26)
  - OSTEONECROSIS OF JAW [None]
  - EXOSTOSIS [None]
  - APPENDIX DISORDER [None]
  - CYSTOCELE [None]
  - CHEST PAIN [None]
  - ORAL INFECTION [None]
  - HYPOTHYROIDISM [None]
  - GLUCOSE TOLERANCE IMPAIRED [None]
  - COLONIC POLYP [None]
  - HYPERLIPIDAEMIA [None]
  - TOOTH DISORDER [None]
  - OSTEOPOROSIS [None]
  - HYPOKALAEMIA [None]
  - HYPERADRENALISM [None]
  - DENTAL CARIES [None]
  - ENTEROCELE [None]
  - RECTOCELE [None]
  - OSTEOPENIA [None]
  - HYPERALDOSTERONISM [None]
  - OSTEOARTHRITIS [None]
  - HYPERCHOLESTEROLAEMIA [None]
  - HAEMORRHOIDS [None]
  - GALLBLADDER DISORDER [None]
  - HYPERTENSION [None]
  - BREAST DISORDER [None]
  - CATARACT [None]
